FAERS Safety Report 4715002-5 (Version None)
Quarter: 2005Q3

REPORT INFORMATION
  Report Type: 
  Country: None (occurrence: None)
  Receive Date: 20050715
  Receipt Date: 20050711
  Transmission Date: 20060218
  Serious: Yes (Hospitalization)
  Sender: FDA-Public Use
  Company Number: 200516326GDDC

PATIENT
  Age: 71 Year
  Sex: Male

DRUGS (6)
  1. GLIBENCLAMIDE [Suspect]
     Indication: DIABETES MELLITUS NON-INSULIN-DEPENDENT
     Dosage: DOSE: UNK
     Route: 048
     Dates: start: 20041220, end: 20050621
  2. METFORMIN HCL [Suspect]
     Indication: DIABETES MELLITUS NON-INSULIN-DEPENDENT
     Dosage: DOSE: UNK
     Route: 048
     Dates: start: 20041115, end: 20050621
  3. PERINDOPRIL [Concomitant]
     Dosage: DOSE: UNK
     Dates: start: 20010117
  4. PRAVASTATIN [Concomitant]
     Dosage: DOSE: UNK
     Dates: start: 20040324
  5. BENDROFLUAZIDE [Concomitant]
     Dosage: DOSE: UNK
     Dates: start: 20040324
  6. ASPIRIN [Concomitant]
     Dosage: DOSE: UNK
     Dates: start: 20031103

REACTIONS (2)
  - ATRIAL FIBRILLATION [None]
  - LEFT VENTRICULAR FAILURE [None]
